FAERS Safety Report 4944879-3 (Version None)
Quarter: 2006Q1

REPORT INFORMATION
  Report Type: 
  Country: None (occurrence: None)
  Receive Date: 20060315
  Receipt Date: 20060309
  Transmission Date: 20060701
  Serious: Yes (Disabling)
  Sender: FDA-Public Use
  Company Number: GB-MERCK-0603GBR00042

PATIENT
  Age: 47 Year
  Sex: Female

DRUGS (6)
  1. SINGULAIR [Suspect]
     Indication: ASTHMA
     Route: 048
     Dates: start: 20051222, end: 20060214
  2. FEXOFENADINE HYDROCHLORIDE [Concomitant]
     Indication: SEASONAL ALLERGY
     Route: 048
     Dates: start: 20020101
  3. TIBOLONE [Concomitant]
     Indication: HORMONE REPLACEMENT THERAPY
     Route: 048
     Dates: start: 19990101
  4. SIMVASTATIN [Concomitant]
     Indication: BLOOD CHOLESTEROL INCREASED
     Route: 048
     Dates: start: 20020101
  5. ALBUTEROL [Concomitant]
     Indication: ASTHMA
     Route: 055
  6. BUDESONIDE [Concomitant]
     Indication: ASTHMA
     Route: 055

REACTIONS (4)
  - AGITATION [None]
  - NIGHTMARE [None]
  - PALPITATIONS [None]
  - TREMOR [None]
